FAERS Safety Report 4347588-7 (Version None)
Quarter: 2004Q2

REPORT INFORMATION
  Report Type: 
  Country: None (occurrence: None)
  Receive Date: 20040422
  Receipt Date: 20040407
  Transmission Date: 20050107
  Serious: Yes (Other)
  Sender: FDA-Public Use
  Company Number: US_0404102161

PATIENT
  Age: 58 Year
  Sex: Female

DRUGS (6)
  1. EVISTA [Suspect]
     Indication: OSTEOPOROSIS
     Dosage: 60 MG/1 DAY
     Dates: start: 20010201, end: 20020219
  2. FOSAMAX [Concomitant]
  3. ACTONEL [Concomitant]
  4. MIACALCIN [Concomitant]
  5. HORMONE REPLACEMENT THERAPY [Concomitant]
  6. CALCIUM [Concomitant]

REACTIONS (2)
  - FOOT FRACTURE [None]
  - OSTEOPOROTIC FRACTURE [None]
